FAERS Safety Report 6049981-3 (Version None)
Quarter: 2009Q1

REPORT INFORMATION
  Report Type: 
  Country: None (occurrence: None)
  Receive Date: 20090121
  Receipt Date: 20090106
  Transmission Date: 20090719
  Serious: Yes (Congenital Anomaly)
  Sender: FDA-Public Use
  Company Number: 8040935

PATIENT
  Sex: Male

DRUGS (4)
  1. KEPPRA [Suspect]
     Dosage: 1000 MG 2/D TRP
     Route: 064
     Dates: start: 20070801
  2. VITAMIN TAB [Concomitant]
  3. FOLIC ACID [Concomitant]
  4. PHENERGAN HCL [Concomitant]

REACTIONS (3)
  - CONGENITAL TORTICOLLIS [None]
  - DRUG EXPOSURE VIA BREAST MILK [None]
  - HYDROCELE [None]
